FAERS Safety Report 10054077 (Version 1)
Quarter: 2014Q2

REPORT INFORMATION
  Report Type: Spontaneous
  Country: US (occurrence: US)
  Receive Date: 20140402
  Receipt Date: 20140402
  Transmission Date: 20141212
  Serious: No
  Sender: FDA-Public Use
  Company Number: US-AMGEN-USASP2014016483

PATIENT
  Age: 6 Month
  Sex: 0

DRUGS (2)
  1. ENBREL [Suspect]
     Indication: PRODUCT USED FOR UNKNOWN INDICATION
     Dosage: 50 MG, QWK
     Route: 063
     Dates: start: 2012, end: 201209
  2. IRON [Concomitant]
     Dosage: UNK

REACTIONS (1)
  - Ear infection [Unknown]
